FAERS Safety Report 7493170-2 (Version None)
Quarter: 2011Q2

REPORT INFORMATION
  Report Type: 
  Country: None (occurrence: None)
  Receive Date: 20110520
  Receipt Date: 20110509
  Transmission Date: 20111010
  Serious: Yes (Hospitalization, Other)
  Sender: FDA-Public Use
  Company Number: FR-JNJFOC-20110404040

PATIENT
  Sex: Male

DRUGS (3)
  1. PREDNISONE [Suspect]
     Indication: PROSTATE CANCER
     Route: 065
  2. ABIRATERONE [Suspect]
     Indication: PROSTATE CANCER
     Route: 048
     Dates: start: 20110316, end: 20110325
  3. ABIRATERONE [Suspect]
     Route: 048

REACTIONS (5)
  - URINARY TRACT INFECTION [None]
  - MYALGIA [None]
  - TENDON PAIN [None]
  - TACHYCARDIA [None]
  - HYPOTENSION [None]
